FAERS Safety Report 25318039 (Version 1)
Quarter: 2025Q2

REPORT INFORMATION
  Report Type: Report from Study
  Country: US (occurrence: US)
  Receive Date: 20250515
  Receipt Date: 20250515
  Transmission Date: 20250716
  Serious: Yes (Death, Hospitalization)
  Sender: MYLAN
  Company Number: US-MYLANLABS-2025M1040952

PATIENT
  Age: 64 Year
  Sex: Male

DRUGS (28)
  1. VANCOMYCIN [Suspect]
     Active Substance: VANCOMYCIN
     Indication: Staphylococcal infection
  2. VANCOMYCIN [Suspect]
     Active Substance: VANCOMYCIN
     Indication: Haematological infection
     Route: 065
  3. VANCOMYCIN [Suspect]
     Active Substance: VANCOMYCIN
     Indication: Thrombophlebitis septic
     Route: 065
  4. VANCOMYCIN [Suspect]
     Active Substance: VANCOMYCIN
     Indication: Pneumonia
  5. VANCOMYCIN [Suspect]
     Active Substance: VANCOMYCIN
     Indication: Arthritis infective
  6. VANCOMYCIN [Suspect]
     Active Substance: VANCOMYCIN
     Indication: Eye infection staphylococcal
  7. VANCOMYCIN [Suspect]
     Active Substance: VANCOMYCIN
     Indication: Catheter site infection
  8. DAPTOMYCIN [Suspect]
     Active Substance: DAPTOMYCIN
     Indication: Staphylococcal infection
  9. DAPTOMYCIN [Suspect]
     Active Substance: DAPTOMYCIN
     Indication: Haematological infection
     Route: 065
  10. DAPTOMYCIN [Suspect]
     Active Substance: DAPTOMYCIN
     Indication: Thrombophlebitis septic
     Route: 065
  11. DAPTOMYCIN [Suspect]
     Active Substance: DAPTOMYCIN
     Indication: Pneumonia
  12. DAPTOMYCIN [Suspect]
     Active Substance: DAPTOMYCIN
     Indication: Arthritis infective
  13. DAPTOMYCIN [Suspect]
     Active Substance: DAPTOMYCIN
     Indication: Eye infection staphylococcal
  14. DAPTOMYCIN [Suspect]
     Active Substance: DAPTOMYCIN
     Indication: Catheter site infection
  15. CEFTAROLINE [Suspect]
     Active Substance: CEFTAROLINE
     Indication: Staphylococcal infection
  16. CEFTAROLINE [Suspect]
     Active Substance: CEFTAROLINE
     Indication: Haematological infection
     Route: 065
  17. CEFTAROLINE [Suspect]
     Active Substance: CEFTAROLINE
     Indication: Thrombophlebitis septic
     Route: 065
  18. CEFTAROLINE [Suspect]
     Active Substance: CEFTAROLINE
     Indication: Pneumonia
  19. CEFTAROLINE [Suspect]
     Active Substance: CEFTAROLINE
     Indication: Arthritis infective
  20. CEFTAROLINE [Suspect]
     Active Substance: CEFTAROLINE
     Indication: Eye infection staphylococcal
  21. CEFTAROLINE [Suspect]
     Active Substance: CEFTAROLINE
     Indication: Catheter site infection
  22. LINEZOLID [Suspect]
     Active Substance: LINEZOLID
     Indication: Staphylococcal infection
  23. LINEZOLID [Suspect]
     Active Substance: LINEZOLID
     Indication: Haematological infection
     Route: 065
  24. LINEZOLID [Suspect]
     Active Substance: LINEZOLID
     Indication: Thrombophlebitis septic
     Route: 065
  25. LINEZOLID [Suspect]
     Active Substance: LINEZOLID
     Indication: Pneumonia
  26. LINEZOLID [Suspect]
     Active Substance: LINEZOLID
     Indication: Arthritis infective
  27. LINEZOLID [Suspect]
     Active Substance: LINEZOLID
     Indication: Eye infection staphylococcal
  28. LINEZOLID [Suspect]
     Active Substance: LINEZOLID
     Indication: Catheter site infection

REACTIONS (1)
  - Drug ineffective [Fatal]
